FAERS Safety Report 26005103 (Version 1)
Quarter: 2025Q4

REPORT INFORMATION
  Report Type: Spontaneous
  Country: JP (occurrence: JP)
  Receive Date: 20251106
  Receipt Date: 20251106
  Transmission Date: 20260117
  Serious: Yes (Other)
  Sender: GILEAD
  Company Number: JP-GILEAD-2025-0735137

PATIENT
  Age: 53 Year

DRUGS (8)
  1. TRODELVY [Suspect]
     Active Substance: SACITUZUMAB GOVITECAN-HZIY
     Indication: Triple negative breast cancer
     Dosage: 10 MG/KG, DAYS 1 AND 8 OF A 21-DAY CYCLE
     Route: 041
  2. ACETAMINOPHEN [Concomitant]
     Active Substance: ACETAMINOPHEN
     Dosage: 500 MG, DAYS 1 AND 8 OF A 21-DAY CYCLE
     Route: 048
  3. DECADRON (DEXAMETHASONE SODIUM PHOSPHATE) [Concomitant]
     Active Substance: DEXAMETHASONE SODIUM PHOSPHATE
     Dosage: 6.6 MG, DAYS 1 AND 8 OF A 21-DAY CYCLE
     Route: 041
  4. FAMOTIDINE [Concomitant]
     Active Substance: FAMOTIDINE
     Dosage: 20 MG, DAYS 1 AND 8 OF A 21-DAY CYCLE
     Route: 041
  5. GRANISETRON HYDROCHLORIDE [Concomitant]
     Active Substance: GRANISETRON HYDROCHLORIDE
     Dosage: 3 MG, DAYS 1 AND 8 OF A 21-DAY CYCLE
     Route: 041
  6. POLARAMINE [Concomitant]
     Active Substance: DEXCHLORPHENIRAMINE MALEATE
     Dosage: 5 MG, DAYS 1 AND 8 OF A 21-DAY CYCLE
     Route: 041
  7. SODIUM CHLORIDE [Concomitant]
     Active Substance: SODIUM CHLORIDE
     Dosage: 50 ML, TID, DAYS 1 AND 8 OF A 21-DAY CYCLE
     Route: 041
  8. SODIUM CHLORIDE [Concomitant]
     Active Substance: SODIUM CHLORIDE
     Dosage: 250 ML
     Route: 041

REACTIONS (1)
  - Triple negative breast cancer [Unknown]
